FAERS Safety Report 9657224 (Version 2)
Quarter: 2013Q4

REPORT INFORMATION
  Report Type: Spontaneous
  Country: AU (occurrence: AU)
  Receive Date: 20131030
  Receipt Date: 20131104
  Transmission Date: 20140711
  Serious: Yes (Other)
  Sender: FDA-Public Use
  Company Number: AU-ABBVIE-13P-008-1163404-00

PATIENT
  Age: 49 Year
  Sex: Male

DRUGS (3)
  1. HUMIRA [Suspect]
     Indication: PSORIATIC ARTHROPATHY
     Dates: start: 20130911, end: 20130925
  2. BLOOD PRESSURE TABLETS [Concomitant]
     Indication: BLOOD PRESSURE
  3. TYPE 2 DIABETES MEDICATION [Concomitant]
     Indication: TYPE 2 DIABETES MELLITUS

REACTIONS (8)
  - Pharyngeal oedema [Recovering/Resolving]
  - Visual impairment [Unknown]
  - Swelling face [Unknown]
  - Blood pressure decreased [Unknown]
  - Chest pain [Unknown]
  - Swelling face [Unknown]
  - Hypoaesthesia [Unknown]
  - Oropharyngeal pain [Unknown]
